FAERS Safety Report 4463617-4 (Version None)
Quarter: 2004Q3

REPORT INFORMATION
  Report Type: 
  Country: None (occurrence: None)
  Receive Date: 20040930
  Receipt Date: 20040915
  Transmission Date: 20050211
  Serious: Yes (Death)
  Sender: FDA-Public Use
  Company Number: 2004S1002476

PATIENT
  Age: 71 Year
  Sex: Male

DRUGS (13)
  1. CLOZAPINE [Suspect]
     Dosage: 50MG/DAY, ORAL
     Route: 048
  2. OXYCODONE/ACETAMONOPHEN [Concomitant]
  3. VITAMINS WITH MINERALS [Concomitant]
  4. CELECOXIB [Concomitant]
  5. SERTRALINE HCL [Concomitant]
  6. ARIPIPRAZOLE [Concomitant]
  7. SILVER SULFADIAZINE [Concomitant]
  8. ENTACAPONE [Concomitant]
  9. CARBIDOPA AND LEVODOPA [Concomitant]
  10. LANSOPRAZOLE [Concomitant]
  11. ASPIRIN [Concomitant]
  12. BUSPIRONE [Concomitant]
  13. ACETAMINOPHEN [Concomitant]

REACTIONS (1)
  - DEATH [None]
